FAERS Safety Report 16798672 (Version 1)
Quarter: 2019Q3

REPORT INFORMATION
  Report Type: Report from Study
  Country: IE (occurrence: IE)
  Receive Date: 20190912
  Receipt Date: 20190912
  Transmission Date: 20191005
  Serious: Yes (Hospitalization, Other)
  Sender: FDA-Public Use
  Company Number: IE-JNJFOC-20190716484

PATIENT
  Age: 84 Year
  Sex: Male

DRUGS (11)
  1. BUTRANS [Concomitant]
     Active Substance: BUPRENORPHINE
     Route: 065
  2. NUPRIN                             /00002701/ [Concomitant]
     Route: 050
  3. FUROSEMIDE. [Concomitant]
     Active Substance: FUROSEMIDE
     Route: 050
  4. DESUNIN [Concomitant]
     Active Substance: CHOLECALCIFEROL
     Dosage: 800 UNITS
     Route: 050
  5. MIRABEGRON [Concomitant]
     Active Substance: MIRABEGRON
     Route: 050
  6. APIDRA [Concomitant]
     Active Substance: INSULIN GLULISINE
     Dosage: 12 UNITS
     Route: 050
  7. DELTACORTRIL [Concomitant]
     Active Substance: PREDNISOLONE
     Route: 050
  8. MIRAPEXIN [Concomitant]
     Active Substance: PRAMIPEXOLE
     Route: 050
  9. TRESIBA [Concomitant]
     Active Substance: INSULIN DEGLUDEC
     Route: 050
  10. ABIRATERONE ACETATE. [Suspect]
     Active Substance: ABIRATERONE ACETATE
     Indication: PROSTATE CANCER
     Route: 048
     Dates: start: 20190708
  11. NEBIVOLOL HYDROCHLORIDE [Concomitant]
     Active Substance: NEBIVOLOL HYDROCHLORIDE
     Route: 065

REACTIONS (5)
  - Constipation [Not Recovered/Not Resolved]
  - Oedema [Not Recovered/Not Resolved]
  - Renal impairment [Unknown]
  - Abdominal pain upper [Not Recovered/Not Resolved]
  - Kidney infection [Recovered/Resolved]

NARRATIVE: CASE EVENT DATE: 201907
